FAERS Safety Report 7512906-5 (Version None)
Quarter: 2011Q2

REPORT INFORMATION
  Report Type: 
  Country: None (occurrence: None)
  Receive Date: 20110531
  Receipt Date: 20101129
  Transmission Date: 20111010
  Serious: No
  Sender: FDA-Public Use
  Company Number: US-NOVEN-ALL1-2010-06234

PATIENT
  Sex: Male

DRUGS (2)
  1. TENEX [Concomitant]
     Dosage: UNK MG, 1X/DAY:QD
     Route: 048
  2. DAYTRANA [Suspect]
     Dosage: UNK MG, 1X/DAY:QD(RIPPED UNKNOWN MG PATCH IN HALF AND APPLIED)
     Route: 062
     Dates: start: 20100501, end: 20100101

REACTIONS (2)
  - WRONG TECHNIQUE IN DRUG USAGE PROCESS [None]
  - NO ADVERSE EVENT [None]
